FAERS Safety Report 4323686-9 (Version None)
Quarter: 2004Q1

REPORT INFORMATION
  Report Type: 
  Country: None (occurrence: None)
  Receive Date: 20040324
  Receipt Date: 20040324
  Transmission Date: 20041129
  Serious: Yes (Other)
  Sender: FDA-Public Use
  Company Number: None

PATIENT
  Age: 17 Year
  Sex: Male
  Weight: 77.1115 kg

DRUGS (4)
  1. CORICIDIN HBP COLD AND FLU (CHLORPHENIRAMINE/ACETAMINO TABLETS [Suspect]
     Indication: DRUG ABUSER
     Dosage: 10 TABLETS ORAL
     Route: 048
  2. ZYPREXA [Concomitant]
  3. CELEXA [Concomitant]
  4. WELLBUTRIN [Concomitant]

REACTIONS (1)
  - INTENTIONAL OVERDOSE [None]
